FAERS Safety Report 16650376 (Version 1)
Quarter: 2019Q3

REPORT INFORMATION
  Report Type: Spontaneous
  Country: US (occurrence: US)
  Receive Date: 20190731
  Receipt Date: 20190731
  Transmission Date: 20191004
  Serious: No
  Sender: FDA-Public Use
  Company Number: US-TEVA-2019-US-1084616

PATIENT
  Age: 62 Year
  Sex: Male

DRUGS (14)
  1. ATORVASTATIN [Concomitant]
     Active Substance: ATORVASTATIN
  2. ASPIRIN. [Concomitant]
     Active Substance: ASPIRIN
  3. PIOGLITAZONE. [Concomitant]
     Active Substance: PIOGLITAZONE
  4. JANUVIA [Concomitant]
     Active Substance: SITAGLIPTIN PHOSPHATE
  5. GLIPIZIDE. [Concomitant]
     Active Substance: GLIPIZIDE
  6. VIT D [Concomitant]
     Active Substance: VITAMIN D NOS
  7. AMITRIPTYLINE [Concomitant]
     Active Substance: AMITRIPTYLINE
  8. SYNRIBO [Suspect]
     Active Substance: OMACETAXINE MEPESUCCINATE
     Indication: CHRONIC MYELOID LEUKAEMIA
     Dosage: DOSAGE: 2.71MG/0.77ML
     Route: 065
  9. EZETIMIBE. [Concomitant]
     Active Substance: EZETIMIBE
  10. ANASTROZOLE. [Concomitant]
     Active Substance: ANASTROZOLE
  11. TRULICITY [Concomitant]
     Active Substance: DULAGLUTIDE
  12. INVOKAMET [Concomitant]
     Active Substance: CANAGLIFLOZIN\METFORMIN HYDROCHLORIDE
  13. LISINOPRIL. [Concomitant]
     Active Substance: LISINOPRIL
  14. PANTROPRAZOLE [Concomitant]

REACTIONS (3)
  - Back pain [Recovered/Resolved]
  - Alopecia [Recovered/Resolved]
  - Chest pain [Recovered/Resolved]
